FAERS Safety Report 17707124 (Version 2)
Quarter: 2021Q2

REPORT INFORMATION
  Report Type: Spontaneous
  Country: US (occurrence: US)
  Receive Date: 20200424
  Receipt Date: 20210513
  Transmission Date: 20210716
  Serious: Yes (Other)
  Sender: FDA-Public Use
  Company Number: US-VERTEX PHARMACEUTICALS-2020-009293

PATIENT
  Sex: Male
  Weight: 65 kg

DRUGS (2)
  1. TRIKAFTA [Suspect]
     Active Substance: ELEXACAFTOR\IVACAFTOR\TEZACAFTOR
     Dosage: 1 ORANGE PILL AND EVENING PILL
     Route: 048
  2. TRIKAFTA [Suspect]
     Active Substance: ELEXACAFTOR\IVACAFTOR\TEZACAFTOR
     Indication: CYSTIC FIBROSIS
     Dosage: 100 MG ELEXACAFTOR/ 50 MG TEZACAFTOR/ 75 MG IVACAFTOR; 150MG IVACAFTOR TABLET (FREQUENCY UNKNOWN)
     Route: 048
     Dates: start: 20191126

REACTIONS (4)
  - Anxiety [Unknown]
  - Seizure [Unknown]
  - Nephrolithiasis [Recovering/Resolving]
  - Inflammation [Recovering/Resolving]
